FAERS Safety Report 8871722 (Version 7)
Quarter: 2014Q4

REPORT INFORMATION
  Report Type: Spontaneous
  Country: US (occurrence: US)
  Receive Date: 20121030
  Receipt Date: 20141017
  Transmission Date: 20150529
  Serious: Yes (Hospitalization, Other)
  Sender: FDA-Public Use
  Company Number: US-009507513-1210USA007968

PATIENT
  Sex: Female
  Weight: 78.5 kg

DRUGS (4)
  1. FOSAMAX [Suspect]
     Active Substance: ALENDRONATE SODIUM
     Dosage: 70 MG, UNK
     Route: 048
  2. ZYRTEC [Concomitant]
     Active Substance: CETIRIZINE HYDROCHLORIDE
     Indication: HYPERSENSITIVITY
     Dosage: 10 MG, QD
     Dates: start: 1992
  3. FOSAMAX [Suspect]
     Active Substance: ALENDRONATE SODIUM
     Indication: OSTEOPOROSIS
     Dosage: UNK UNK, QD
     Route: 048
     Dates: start: 1996, end: 2008
  4. ALENDRONATE SODIUM. [Suspect]
     Active Substance: ALENDRONATE SODIUM
     Indication: OSTEOPOROSIS
     Dosage: 70 MG, UNK
     Route: 048
     Dates: start: 20090528, end: 20110521

REACTIONS (26)
  - Open reduction of fracture [Unknown]
  - Hand fracture [Unknown]
  - Foot fracture [Unknown]
  - Weight increased [Unknown]
  - Bursitis [Unknown]
  - Vertigo [Unknown]
  - Gastrooesophageal reflux disease [Unknown]
  - Splenic rupture [Unknown]
  - Asthma [Unknown]
  - Foot deformity [Unknown]
  - Atrioventricular block first degree [Unknown]
  - Femur fracture [Unknown]
  - Rib fracture [Unknown]
  - Fatigue [Unknown]
  - Vitamin B complex deficiency [Unknown]
  - Musculoskeletal disorder [Unknown]
  - Low turnover osteopathy [Unknown]
  - Head injury [Unknown]
  - Vitamin D deficiency [Unknown]
  - Adverse event [Unknown]
  - Constipation [Recovered/Resolved]
  - Road traffic accident [Unknown]
  - Foot fracture [Unknown]
  - Fall [Unknown]
  - Lactose intolerance [Unknown]
  - Fracture nonunion [Unknown]

NARRATIVE: CASE EVENT DATE: 200104
